FAERS Safety Report 6592970-0 (Version None)
Quarter: 2010Q1

REPORT INFORMATION
  Report Type: 
  Country: None (occurrence: None)
  Receive Date: 20100212
  Receipt Date: 20100202
  Transmission Date: 20100710
  Serious: Yes (Hospitalization)
  Sender: FDA-Public Use
  Company Number: 2008-185943-NL

PATIENT
  Age: 25 Year
  Sex: Female
  Weight: 47 kg

DRUGS (9)
  1. REMERGIL SOLTAB (MIRTAZAPINE /01293201/) (15 MG) [Suspect]
     Indication: DEPRESSION
     Dosage: 15 MG; QD; PO, PO
     Route: 048
     Dates: start: 20080619
  2. REMERGIL SOLTAB (MIRTAZAPINE /01293201/) (15 MG) [Suspect]
     Indication: DEPRESSION
     Dosage: 15 MG; QD; PO, PO
     Route: 048
     Dates: start: 20080711
  3. SAROTEN RETARD TABLETS (AMITRIPTYLINE) (AMITRIIPTYLINE HYDROCHLORIDE) [Suspect]
     Indication: DEPRESSION
     Dosage: PO, 75 MG; QD; PO
     Route: 048
     Dates: start: 20080610, end: 20080618
  4. SAROTEN RETARD TABLETS (AMITRIPTYLINE) (AMITRIIPTYLINE HYDROCHLORIDE) [Suspect]
     Indication: DEPRESSION
     Dosage: PO, 75 MG; QD; PO
     Route: 048
     Dates: start: 20080619
  5. LORAZEPAM [Suspect]
     Indication: DEPRESSION
     Dosage: 1 MG; QD
     Dates: start: 20080715, end: 20080717
  6. LORAZEPAM [Suspect]
     Indication: DEPRESSION
     Dosage: 1 MG; QD
     Dates: start: 20080630, end: 20080721
  7. CITALOPRAM HYDROBROMIDE [Suspect]
     Indication: DRUG USE FOR UNKNOWN INDICATION
     Dosage: QD
     Dates: start: 20080529, end: 20080609
  8. DIAZEPAM [Suspect]
     Indication: DRUG USE FOR UNKNOWN INDICATION
     Dates: start: 20080530, end: 20080622
  9. PARACETAMOL [Concomitant]

REACTIONS (2)
  - ELECTROCARDIOGRAM QT PROLONGED [None]
  - HEART RATE INCREASED [None]
